FAERS Safety Report 7840861 (Version 4)
Quarter: 2012Q4

REPORT INFORMATION
  Report Type: 
  Country: JP (occurrence: JP)
  Receive Date: 20110304
  Receipt Date: 20121226
  Transmission Date: 20130627
  Serious: Yes (Death, Hospitalization)
  Sender: FDA-Public Use
  Company Number: JP-PFIZER INC-2011042379

PATIENT
  Age: 55 Year
  Sex: Female

DRUGS (1)
  1. SUTENT [Suspect]
     Indication: METASTATIC RENAL CELL CARCINOMA
     Dosage: 37.5 mg/day on a cycle of 28-day administration followed by 14-day cessation
     Route: 048
     Dates: start: 20101126, end: 201102

REACTIONS (8)
  - Disease progression [Fatal]
  - Metastatic renal cell carcinoma [Fatal]
  - Pleural effusion [Unknown]
  - Palmar-plantar erythrodysaesthesia syndrome [Unknown]
  - Hypertension [Unknown]
  - Malaise [Unknown]
  - Face oedema [Unknown]
  - Arrhythmia [Unknown]
